FAERS Safety Report 9709063 (Version 1)
Quarter: 2013Q4

REPORT INFORMATION
  Report Type: Spontaneous
  Country: US (occurrence: US)
  Receive Date: 20131125
  Receipt Date: 20131125
  Transmission Date: 20140711
  Serious: Yes (Other)
  Sender: FDA-Public Use
  Company Number: US-UCBSA-103744

PATIENT
  Age: 25 Year
  Sex: Female

DRUGS (1)
  1. CIMZIA [Suspect]
     Indication: RHEUMATOID ARTHRITIS
     Dosage: STRENGTH:200 MG
     Route: 058
     Dates: start: 20130918, end: 20130930

REACTIONS (4)
  - Oedema peripheral [Unknown]
  - Arthralgia [Unknown]
  - Movement disorder [Unknown]
  - Rash [Recovered/Resolved]
